FAERS Safety Report 25299851 (Version 2)
Quarter: 2025Q2

REPORT INFORMATION
  Report Type: Spontaneous
  Country: CZ (occurrence: CZ)
  Receive Date: 20250512
  Receipt Date: 20250604
  Transmission Date: 20250717
  Serious: Yes (Other)
  Sender: MYLAN
  Company Number: None

PATIENT
  Age: 82 Year
  Sex: Female

DRUGS (16)
  1. ISOPTIN [Interacting]
     Active Substance: VERAPAMIL HYDROCHLORIDE
     Indication: Product used for unknown indication
     Dosage: 80 MILLIGRAM, Q8H, 3X1 PER DAY
  2. ISOPTIN [Interacting]
     Active Substance: VERAPAMIL HYDROCHLORIDE
     Dosage: 80 MILLIGRAM, Q8H, 3X1 PER DAY
     Route: 065
  3. ISOPTIN [Interacting]
     Active Substance: VERAPAMIL HYDROCHLORIDE
     Dosage: 80 MILLIGRAM, Q8H, 3X1 PER DAY
     Route: 065
  4. ISOPTIN [Interacting]
     Active Substance: VERAPAMIL HYDROCHLORIDE
     Dosage: 80 MILLIGRAM, Q8H, 3X1 PER DAY
  5. URAPIDIL [Suspect]
     Active Substance: URAPIDIL
     Indication: Hypertension
     Dates: start: 20250401, end: 20250401
  6. URAPIDIL [Suspect]
     Active Substance: URAPIDIL
     Route: 048
     Dates: start: 20250401, end: 20250401
  7. URAPIDIL [Suspect]
     Active Substance: URAPIDIL
     Route: 048
     Dates: start: 20250401, end: 20250401
  8. URAPIDIL [Suspect]
     Active Substance: URAPIDIL
     Dates: start: 20250401, end: 20250401
  9. TELMISARTAN [Interacting]
     Active Substance: TELMISARTAN
     Indication: Product used for unknown indication
     Dosage: 40 MILLIGRAM, QD (1 TAB IN MORNING)
  10. TELMISARTAN [Interacting]
     Active Substance: TELMISARTAN
     Dosage: 40 MILLIGRAM, QD (1 TAB IN MORNING)
     Route: 065
  11. TELMISARTAN [Interacting]
     Active Substance: TELMISARTAN
     Dosage: 40 MILLIGRAM, QD (1 TAB IN MORNING)
     Route: 065
  12. TELMISARTAN [Interacting]
     Active Substance: TELMISARTAN
     Dosage: 40 MILLIGRAM, QD (1 TAB IN MORNING)
  13. CAPTOPRIL [Suspect]
     Active Substance: CAPTOPRIL
     Indication: Hypertension
     Dates: start: 20250401, end: 20250401
  14. CAPTOPRIL [Suspect]
     Active Substance: CAPTOPRIL
     Route: 065
     Dates: start: 20250401, end: 20250401
  15. CAPTOPRIL [Suspect]
     Active Substance: CAPTOPRIL
     Route: 065
     Dates: start: 20250401, end: 20250401
  16. CAPTOPRIL [Suspect]
     Active Substance: CAPTOPRIL
     Dates: start: 20250401, end: 20250401

REACTIONS (8)
  - Paralysis [Recovered/Resolved]
  - Loss of consciousness [Recovered/Resolved]
  - Balance disorder [Recovering/Resolving]
  - Gait disturbance [Recovering/Resolving]
  - Visual impairment [Recovering/Resolving]
  - Retching [Recovered/Resolved]
  - Headache [Recovering/Resolving]
  - Drug interaction [Unknown]

NARRATIVE: CASE EVENT DATE: 20250401
